FAERS Safety Report 4269916-3 (Version None)
Quarter: 2004Q1

REPORT INFORMATION
  Report Type: 
  Country: None (occurrence: None)
  Receive Date: 20040112
  Receipt Date: 20031230
  Transmission Date: 20041129
  Serious: Yes (Hospitalization)
  Sender: FDA-Public Use
  Company Number: US-JNJFOC-20040100204

PATIENT
  Age: 50 Year
  Sex: Female
  Weight: 62.5964 kg

DRUGS (11)
  1. INFLIXIMAB (INFLIXIMAB, RECOMBINANT) LYOPHILIZED POWDER [Suspect]
     Indication: RHEUMATOID ARTHRITIS
     Dosage: INTRAVENOUS
     Route: 042
     Dates: start: 20020130, end: 20030219
  2. NEXIUM [Concomitant]
  3. ACTOS [Concomitant]
  4. PROPRANOLOL [Concomitant]
  5. LOPID [Concomitant]
  6. BEXTRA [Concomitant]
  7. FLEXORIL (CYCLOBENZAPRINE HYDROCHLORIDE) [Concomitant]
  8. FUROSEMIDE [Concomitant]
  9. LOMOTIL [Concomitant]
  10. ALBUTEROL [Concomitant]
  11. LORTAB [Concomitant]

REACTIONS (6)
  - AORTIC BIFURCATION GRAFT [None]
  - ARTERIAL OCCLUSIVE DISEASE [None]
  - ASTHENIA [None]
  - HYPOAESTHESIA [None]
  - LEG AMPUTATION [None]
  - PAIN IN EXTREMITY [None]
